FAERS Safety Report 7480389-X (Version None)
Quarter: 2011Q2

REPORT INFORMATION
  Report Type: 
  Country: None (occurrence: None)
  Receive Date: 20110504
  Receipt Date: 20110221
  Transmission Date: 20111010
  Serious: Yes (Other)
  Sender: FDA-Public Use
  Company Number: CC11-012

PATIENT
  Age: 20 Year
  Sex: Female
  Weight: 52.1637 kg

DRUGS (3)
  1. FLUOXETINE [Suspect]
     Indication: DEPRESSION
     Dosage: 7.5 ML, DAILY;
  2. KEPPRA [Concomitant]
  3. SYNTHROID [Concomitant]

REACTIONS (3)
  - JOINT SWELLING [None]
  - JOINT STIFFNESS [None]
  - RASH MACULAR [None]
